FAERS Safety Report 4544182-X (Version None)
Quarter: 2005Q1

REPORT INFORMATION
  Report Type: 
  Country: None (occurrence: None)
  Receive Date: 20050104
  Receipt Date: 20050104
  Transmission Date: 20050727
  Serious: Yes (Other)
  Sender: FDA-Public Use
  Company Number: PHBS2005BR00455

PATIENT
  Sex: Male

DRUGS (2)
  1. LEPONEX [Suspect]
     Dosage: 100 MG, BID
     Route: 048
  2. LEPONEX [Suspect]
     Dosage: 500 MG, QD
     Route: 048
     Dates: start: 20050103, end: 20050103

REACTIONS (3)
  - CHEST PAIN [None]
  - DELIRIUM [None]
  - MEDICATION ERROR [None]
